FAERS Safety Report 8404605-2 (Version None)
Quarter: 2012Q2

REPORT INFORMATION
  Report Type: 
  Country: None (occurrence: None)
  Receive Date: 20120601
  Receipt Date: 20120523
  Transmission Date: 20120825
  Serious: Yes (Death, Hospitalization)
  Sender: FDA-Public Use
  Company Number: US-BAXTER-2012BAX003865

PATIENT
  Sex: Female

DRUGS (1)
  1. DIANEAL [Suspect]
     Route: 033

REACTIONS (1)
  - BACTERIAL SEPSIS [None]
